FAERS Safety Report 6034862-1 (Version None)
Quarter: 2009Q1

REPORT INFORMATION
  Report Type: 
  Country: None (occurrence: None)
  Receive Date: 20090112
  Receipt Date: 20081218
  Transmission Date: 20090719
  Serious: Yes (Other)
  Sender: FDA-Public Use
  Company Number: GB-SANOFI-SYNTHELABO-A01200816553

PATIENT
  Sex: Female

DRUGS (3)
  1. FLUOROURACIL [Concomitant]
     Dosage: UNK
  2. FOLINIC ACID [Concomitant]
     Dosage: UNK
  3. ELOXATIN [Suspect]
     Indication: COLORECTAL CANCER
     Dosage: UNK

REACTIONS (1)
  - RETINAL DETACHMENT [None]
